FAERS Safety Report 4452973-9 (Version None)
Quarter: 2004Q3

REPORT INFORMATION
  Report Type: 
  Country: None (occurrence: None)
  Receive Date: 20040916
  Receipt Date: 20040831
  Transmission Date: 20050211
  Serious: Yes (Hospitalization, Other)
  Sender: FDA-Public Use
  Company Number: 204055

PATIENT
  Sex: Female

DRUGS (1)
  1. AVONEX [Suspect]
     Indication: MULTIPLE SCLEROSIS

REACTIONS (4)
  - CENTRAL LINE INFECTION [None]
  - LUNG DISORDER [None]
  - RENAL FAILURE [None]
  - SEPTIC SHOCK [None]
